FAERS Safety Report 22028842 (Version 2)
Quarter: 2023Q4

REPORT INFORMATION
  Report Type: Spontaneous
  Country: JP (occurrence: JP)
  Receive Date: 20230223
  Receipt Date: 20231011
  Transmission Date: 20240110
  Serious: Yes (Other)
  Sender: FDA-Public Use
  Company Number: JP-OTSUKA-2023_004462

PATIENT
  Age: 1 Year
  Sex: Female

DRUGS (6)
  1. BUSULFEX [Suspect]
     Active Substance: BUSULFAN
     Indication: Cord blood transplant therapy
     Dosage: UNK
     Route: 042
  2. ETOPOSIDE [Suspect]
     Active Substance: ETOPOSIDE
     Indication: Cord blood transplant therapy
     Dosage: 30 MG/KG, UNK
     Route: 065
  3. CYCLOPHOSPHAMIDE [Suspect]
     Active Substance: CYCLOPHOSPHAMIDE
     Indication: Cord blood transplant therapy
     Dosage: 60 MG/KG, UNK
     Route: 065
  4. TACROLIMUS [Suspect]
     Active Substance: TACROLIMUS
     Indication: Prophylaxis against graft versus host disease
     Dosage: REDUCED
     Route: 065
  5. TACROLIMUS [Suspect]
     Active Substance: TACROLIMUS
     Dosage: UNK
     Route: 065
  6. METHOTREXATE [Suspect]
     Active Substance: METHOTREXATE
     Indication: Prophylaxis against graft versus host disease
     Dosage: UNK, SHORT-TERM
     Route: 065

REACTIONS (5)
  - Pulmonary veno-occlusive disease [Recovered/Resolved]
  - Pulmonary hypertension [Unknown]
  - Right ventricular failure [Recovering/Resolving]
  - Nephrotic syndrome [Recovering/Resolving]
  - Thrombotic microangiopathy [Recovering/Resolving]
